FAERS Safety Report 6392147-8 (Version None)
Quarter: 2009Q4

REPORT INFORMATION
  Report Type: 
  Country: None (occurrence: None)
  Receive Date: 20091001
  Receipt Date: 20090729
  Transmission Date: 20100525
  Serious: Yes (Other)
  Sender: FDA-Public Use
  Company Number: US-1170190

PATIENT
  Age: 82 Year
  Sex: Male

DRUGS (5)
  1. TRIESENCE [Suspect]
     Indication: MACULAR OEDEMA
     Dosage: 4 MG INTRAVITREALLY OS INTRAOCULAR
     Route: 031
     Dates: start: 20090701, end: 20090701
  2. ALCAINE [Concomitant]
  3. EPINEPHRINE [Concomitant]
  4. BETADINE [Concomitant]
  5. ZYMAR [Concomitant]

REACTIONS (3)
  - ANTERIOR CHAMBER CELL [None]
  - ENDOPHTHALMITIS [None]
  - HYPOPYON [None]
